FAERS Safety Report 10245933 (Version 2)
Quarter: 2014Q2

REPORT INFORMATION
  Report Type: Spontaneous
  Country: IT (occurrence: IT)
  Receive Date: 20140619
  Receipt Date: 20140627
  Transmission Date: 20141212
  Serious: Yes (Hospitalization)
  Sender: FDA-Public Use
  Company Number: IT-009507513-1406ITA008240

PATIENT
  Age: 42 Year
  Sex: Male

DRUGS (3)
  1. MK-0000 [Suspect]
     Dosage: UNK
  2. RIBAVIRIN [Suspect]
     Indication: CHRONIC HEPATITIS C
     Dosage: TOTAL DAILY DOSE: 1200 MG
     Route: 048
     Dates: start: 20140123, end: 20140522
  3. PEGASYS [Suspect]
     Indication: CHRONIC HEPATITIS C
     Dosage: 180 MICROGRAM , QW
     Route: 058
     Dates: start: 20140123, end: 20140522

REACTIONS (1)
  - Diplopia [Recovering/Resolving]
